FAERS Safety Report 12528333 (Version 1)
Quarter: 2016Q3

REPORT INFORMATION
  Report Type: Spontaneous
  Country: ES (occurrence: ES)
  Receive Date: 20160705
  Receipt Date: 20160705
  Transmission Date: 20161109
  Serious: Yes (Other)
  Sender: FDA-Public Use
  Company Number: ES-JNJFOC-20160700476

PATIENT
  Age: 50 Year
  Sex: Female

DRUGS (2)
  1. IBUPROFEN. [Suspect]
     Active Substance: IBUPROFEN
     Route: 065
  2. IBUPROFEN. [Suspect]
     Active Substance: IBUPROFEN
     Indication: DRUG PROVOCATION TEST
     Dosage: AT INCREMENTAL DOSES OF 5 MG, 50 MG, 100 MG, 150 MG AND 300 MG EVERY 60 MIN DURING ONE DAY
     Route: 065

REACTIONS (5)
  - Product use issue [Unknown]
  - Angioedema [Unknown]
  - Urticaria [Unknown]
  - Pruritus generalised [Unknown]
  - Off label use [Unknown]
